FAERS Safety Report 7898804-6 (Version None)
Quarter: 2011Q4

REPORT INFORMATION
  Report Type: 
  Country: None (occurrence: None)
  Receive Date: 20111107
  Receipt Date: 20111102
  Transmission Date: 20120403
  Serious: Yes (Hospitalization)
  Sender: FDA-Public Use
  Company Number: DE-BAXTER-2011BH035032

PATIENT
  Age: 65 Year
  Sex: Male
  Weight: 71 kg

DRUGS (5)
  1. CYCLOPHOSPHAMIDE [Suspect]
     Indication: B-CELL LYMPHOMA
     Route: 042
     Dates: start: 20110805, end: 20111025
  2. STUDY DRUG [Suspect]
     Indication: B-CELL LYMPHOMA
     Route: 042
     Dates: start: 20110804, end: 20111025
  3. VINCRISTINE SULFATE [Suspect]
     Indication: B-CELL LYMPHOMA
     Route: 042
     Dates: start: 20110805, end: 20111025
  4. PREDNISONE [Suspect]
     Indication: B-CELL LYMPHOMA
     Route: 048
     Dates: start: 20110805, end: 20111025
  5. DOXORUBICIN HCL [Suspect]
     Indication: B-CELL LYMPHOMA
     Route: 042
     Dates: start: 20110805, end: 20111025

REACTIONS (1)
  - PNEUMONIA [None]
